FAERS Safety Report 14973164 (Version 1)
Quarter: 2018Q2

REPORT INFORMATION
  Report Type: Spontaneous
  Country: US (occurrence: US)
  Receive Date: 20180605
  Receipt Date: 20180605
  Transmission Date: 20180711
  Serious: Yes (Other)
  Sender: FDA-Public Use
  Company Number: PHHY2018US011551

PATIENT
  Sex: Female

DRUGS (4)
  1. AMIODARONE [Suspect]
     Active Substance: AMIODARONE
     Dosage: 300 MG, Q12H
     Route: 064
  2. AMIODARONE [Suspect]
     Active Substance: AMIODARONE
     Indication: FOETAL EXPOSURE DURING PREGNANCY
     Dosage: 600 MG, Q8H
     Route: 064
  3. DIGOXIN. [Suspect]
     Active Substance: DIGOXIN
     Indication: FOETAL EXPOSURE DURING PREGNANCY
     Route: 064
  4. SOTALOL. [Suspect]
     Active Substance: SOTALOL
     Indication: FOETAL EXPOSURE DURING PREGNANCY
     Dosage: 480 MG, QD
     Route: 064

REACTIONS (6)
  - Sinus rhythm [Not Recovered/Not Resolved]
  - Foetal exposure during pregnancy [Unknown]
  - Pulmonary hypertension [Recovered/Resolved]
  - Electrocardiogram QRS complex prolonged [Unknown]
  - Atrioventricular block [Unknown]
  - Bundle branch block left [Unknown]
